FAERS Safety Report 7134998-8 (Version None)
Quarter: 2010Q4

REPORT INFORMATION
  Report Type: 
  Country: None (occurrence: None)
  Receive Date: 20101203
  Receipt Date: 20101126
  Transmission Date: 20110411
  Serious: Yes (Hospitalization)
  Sender: FDA-Public Use
  Company Number: JP-MERCK-1011USA03553

PATIENT
  Sex: Male

DRUGS (5)
  1. EMEND [Suspect]
     Indication: PROPHYLAXIS OF NAUSEA AND VOMITING
     Route: 048
  2. DEXAMETHASONE [Concomitant]
     Route: 048
  3. CISPLATIN [Suspect]
     Indication: HEAD AND NECK CANCER
     Route: 041
  4. DOCETAXEL [Suspect]
     Indication: HEAD AND NECK CANCER
     Route: 041
  5. FLUOROURACIL [Suspect]
     Indication: HEAD AND NECK CANCER
     Route: 041

REACTIONS (3)
  - DIALYSIS [None]
  - ENTEROCOLITIS [None]
  - SEPSIS [None]
